FAERS Safety Report 4878980-X (Version None)
Quarter: 2006Q1

REPORT INFORMATION
  Report Type: 
  Country: None (occurrence: None)
  Receive Date: 20060112
  Receipt Date: 20051207
  Transmission Date: 20060701
  Serious: Yes (Death, Hospitalization)
  Sender: FDA-Public Use
  Company Number: US-MERCK-0512USA01400

PATIENT
  Age: 83 Year
  Sex: Female
  Weight: 84 kg

DRUGS (1)
  1. VIOXX [Suspect]
     Indication: ARTHRITIS
     Route: 048
     Dates: start: 20000101, end: 20020926

REACTIONS (4)
  - ARRHYTHMIA [None]
  - CONDITION AGGRAVATED [None]
  - CORONARY ARTERY DISEASE [None]
  - INTESTINAL OBSTRUCTION [None]
